APPROVED DRUG PRODUCT: CLOBETASOL PROPIONATE
Active Ingredient: CLOBETASOL PROPIONATE
Strength: 0.05%
Dosage Form/Route: LOTION;TOPICAL
Application: A208667 | Product #001
Applicant: BEACH PRODUCTS INC
Approved: Nov 29, 2016 | RLD: No | RS: No | Type: DISCN